FAERS Safety Report 5950544-6 (Version None)
Quarter: 2008Q4

REPORT INFORMATION
  Report Type: 
  Country: None (occurrence: None)
  Receive Date: 20081022
  Receipt Date: 20080607
  Transmission Date: 20090506
  Serious: No
  Sender: FDA-Public Use
  Company Number: ALL1-2008-01723

PATIENT
  Sex: Female

DRUGS (1)
  1. VYVANSE [Suspect]
     Dosage: ORAL
     Route: 048
     Dates: start: 20080607

REACTIONS (3)
  - DISTURBANCE IN ATTENTION [None]
  - PANIC REACTION [None]
  - TREMOR [None]
